FAERS Safety Report 9518542 (Version 1)
Quarter: 2013Q1

REPORT INFORMATION
  Report Type: Spontaneous
  Country: US (occurrence: None)
  Receive Date: 20130305
  Receipt Date: 20130305
  Transmission Date: 20140127
  Serious: Yes (Hospitalization, Other)
  Sender: FDA-Public Use
  Company Number: 163-21880-12080831

PATIENT
  Age: 82 Year
  Sex: Male

DRUGS (13)
  1. REVLIMID [Suspect]
     Indication: MYELODYSPLASTIC SYNDROME
     Dosage: 5 MG, 1 IN 1 D, PO
     Route: 048
     Dates: start: 20110817
  2. CALCIUM 600 PLUS D (LEKOVIT CA) (UNKNOWN) [Concomitant]
  3. FISH OIL (FISH OIL) (UNKNOWN) [Concomitant]
  4. AMLODIPINE (AMLODIPINE) (UNKNOWN) [Concomitant]
  5. SIMVASTATIN [Concomitant]
  6. TAMSULOSIN (TAMSULOSIN) (UNKNOWN) [Concomitant]
  7. METOPROLOL (METOPROLOL) (UNKNOWN) [Concomitant]
  8. BUPROPION (BUPROPION) (UNKNOWN) (BUPROPION) [Concomitant]
  9. MICARDIS (TELMISARTAN) (UNKNOWN) [Concomitant]
  10. PLAVIX (CLOPIDOGREL SULFATE) (UNKNOWN) [Concomitant]
  11. COQ10 (UBIDECARENONE) (UNKNOWN) [Concomitant]
  12. ASPIRIN (ACETYLSALICYLIC ACID) (UNKNOWN) (ACETYLSALICYLIC ACID) [Concomitant]
  13. COLACE (DOCUSATE SODIUM) (UNKNOWN) [Concomitant]

REACTIONS (3)
  - Balance disorder [None]
  - Pneumonia [None]
  - Asthenia [None]
